FAERS Safety Report 8473471-1 (Version None)
Quarter: 2012Q2

REPORT INFORMATION
  Report Type: 
  Country: None (occurrence: None)
  Receive Date: 20120625
  Receipt Date: 20120625
  Transmission Date: 20120825
  Serious: Yes (Other)
  Sender: FDA-Public Use
  Company Number: None

PATIENT
  Age: 34 Year
  Sex: Female
  Weight: 61.2356 kg

DRUGS (2)
  1. ALEMTUZUMAB 12-24MG GENZYME, SANOFI-AVENTIS [Suspect]
     Indication: RELAPSING-REMITTING MULTIPLE SCLEROSIS
     Dosage: 12 OR 24 MG ANNUALLY IV
     Route: 042
     Dates: start: 20090330, end: 20090403
  2. ALEMTUZUMAB 12-24MG GENZYME, SANOFI-AVENTIS [Suspect]
     Indication: RELAPSING-REMITTING MULTIPLE SCLEROSIS
     Dosage: 12 OR 24 MG ANNUALLY IV
     Route: 042
     Dates: start: 20100331, end: 20100402

REACTIONS (4)
  - PRECANCEROUS SKIN LESION [None]
  - B-LYMPHOCYTE COUNT DECREASED [None]
  - PAPILLOMA VIRAL INFECTION [None]
  - T-LYMPHOCYTE COUNT DECREASED [None]
